FAERS Safety Report 6803422-4 (Version None)
Quarter: 2010Q2

REPORT INFORMATION
  Report Type: 
  Country: None (occurrence: None)
  Receive Date: 20100628
  Receipt Date: 20100616
  Transmission Date: 20101027
  Serious: Yes (Other)
  Sender: FDA-Public Use
  Company Number: DE-PFIZER INC-2010066608

PATIENT
  Age: 79 Year
  Sex: Male

DRUGS (4)
  1. SUTENT [Suspect]
     Indication: METASTATIC RENAL CELL CARCINOMA
     Dosage: UNK
     Dates: start: 20100421, end: 20100503
  2. SUTENT [Suspect]
     Dosage: 50 MG, EVERY OTHER DAY
     Dates: start: 20100521, end: 20100524
  3. PALLADONE [Concomitant]
     Dosage: 12 MG, 1X/DAY
     Dates: start: 20100401
  4. METOCLOPRAMIDE [Concomitant]
     Dosage: 30 DF, 3X/DAY
     Dates: start: 20100503

REACTIONS (1)
  - MYOCARDIAL INFARCTION [None]
